FAERS Safety Report 9651097 (Version 4)
Quarter: 2014Q1

REPORT INFORMATION
  Report Type: Spontaneous
  Country: US (occurrence: US)
  Receive Date: 20131029
  Receipt Date: 20140207
  Transmission Date: 20141002
  Serious: Yes (Death)
  Sender: FDA-Public Use
  Company Number: US-PFIZER INC-2013306961

PATIENT
  Age: 71 Year
  Sex: Male

DRUGS (1)
  1. SUTENT [Suspect]
     Indication: PAPILLARY THYROID CANCER
     Dosage: 50 MG, DAILY, 4 WEEKS ON/2 WEEKS OFF
     Route: 048
     Dates: start: 20121220, end: 20130329

REACTIONS (3)
  - Disease progression [Fatal]
  - Papillary thyroid cancer [Fatal]
  - Off label use [Unknown]
